FAERS Safety Report 8052017-6 (Version None)
Quarter: 2012Q1

REPORT INFORMATION
  Report Type: 
  Country: None (occurrence: None)
  Receive Date: 20120118
  Receipt Date: 20120109
  Transmission Date: 20120608
  Serious: Yes (Hospitalization)
  Sender: FDA-Public Use
  Company Number: US-BAYER-201037239NA

PATIENT
  Age: 25 Year
  Sex: Female
  Weight: 74.83 kg

DRUGS (4)
  1. YASMIN [Suspect]
     Dosage: UNK UNK, UNK
     Route: 048
     Dates: start: 20080701, end: 20080901
  2. MICROGESTIN FE 1.5/30 [Concomitant]
  3. LOESTRIN FE 1/20 [Concomitant]
  4. YAZ [Suspect]

REACTIONS (11)
  - DIARRHOEA [None]
  - CHOLANGITIS [None]
  - ABDOMINAL DISTENSION [None]
  - FLATULENCE [None]
  - CHOLECYSTECTOMY [None]
  - CHOLECYSTITIS ACUTE [None]
  - CONSTIPATION [None]
  - DEPRESSION [None]
  - SCAR [None]
  - DYSPEPSIA [None]
  - ANXIETY [None]
